FAERS Safety Report 9032650 (Version 1)
Quarter: 2013Q1

REPORT INFORMATION
  Report Type: Spontaneous
  Country: US (occurrence: US)
  Receive Date: 20130125
  Receipt Date: 20130125
  Transmission Date: 20140127
  Serious: No
  Sender: FDA-Public Use
  Company Number: US-009507513-1301USA011497

PATIENT
  Sex: Female

DRUGS (5)
  1. DULERA [Suspect]
     Indication: ASTHMA
     Dosage: 2 DF, QAM
     Route: 055
     Dates: start: 201106, end: 201207
  2. MONTELUKAST SODIUM [Concomitant]
  3. LEXAPRO [Concomitant]
  4. XANAX [Concomitant]
  5. PROAIR (ALBUTEROL SULFATE) [Concomitant]

REACTIONS (2)
  - Asthma [Not Recovered/Not Resolved]
  - Drug dose omission [Unknown]
